FAERS Safety Report 17788345 (Version 1)
Quarter: 2020Q2

REPORT INFORMATION
  Report Type: Spontaneous
  Country: DE (occurrence: DE)
  Receive Date: 20200514
  Receipt Date: 20200514
  Transmission Date: 20200714
  Serious: Yes (Other)
  Sender: FDA-Public Use
  Company Number: DE-MYLANLABS-2020M1046525

PATIENT
  Sex: Female

DRUGS (17)
  1. CANDESARTAN. [Interacting]
     Active Substance: CANDESARTAN
     Dosage: 4 MG, QD
     Route: 065
  2. MULTAQ [Interacting]
     Active Substance: DRONEDARONE
     Indication: PRODUCT USED FOR UNKNOWN INDICATION
     Dosage: 400 MG
     Route: 065
     Dates: start: 20200411
  3. MULTAQ [Interacting]
     Active Substance: DRONEDARONE
     Dosage: 400 MG, QD
     Route: 065
     Dates: start: 20200413
  4. NIFEDIPIN [Interacting]
     Active Substance: NIFEDIPINE
     Indication: PRODUCT USED FOR UNKNOWN INDICATION
     Dosage: 20 MILLIGRAM PER MILLILITRE, TOTAL
     Route: 065
     Dates: start: 20200311
  5. NIFEDIPIN [Interacting]
     Active Substance: NIFEDIPINE
     Dosage: 20 MILLIGRAM PER MILLILITRE, TOTAL
     Route: 065
     Dates: start: 20200411
  6. SORMODREN [Interacting]
     Active Substance: BORNAPRINE HYDROCHLORIDE
     Indication: PRODUCT USED FOR UNKNOWN INDICATION
     Dosage: 4 MG
     Route: 065
     Dates: start: 20200411
  7. BISOPROLOL [Interacting]
     Active Substance: BISOPROLOL
     Indication: PRODUCT USED FOR UNKNOWN INDICATION
     Dosage: 2.5 MG
     Route: 065
  8. ATORVASTATIN [Interacting]
     Active Substance: ATORVASTATIN
     Dosage: 40 MG, QD
     Route: 065
     Dates: start: 20200413
  9. LIXIANA [Interacting]
     Active Substance: EDOXABAN TOSYLATE
     Dosage: 60 MG, QD
     Route: 065
     Dates: start: 20200413
  10. LIXIANA [Interacting]
     Active Substance: EDOXABAN TOSYLATE
     Indication: PRODUCT USED FOR UNKNOWN INDICATION
     Dosage: 60 MG
     Route: 065
     Dates: start: 20200411
  11. SORMODREN [Interacting]
     Active Substance: BORNAPRINE HYDROCHLORIDE
     Dosage: 0.5 DF, BID (4 MG)
     Route: 065
     Dates: start: 20200413
  12. NIFEDIPIN [Interacting]
     Active Substance: NIFEDIPINE
     Dosage: 20 MG/ML, ONCE/SINGLE
     Route: 065
     Dates: start: 20200413
  13. ATORVASTATIN [Interacting]
     Active Substance: ATORVASTATIN
     Indication: PRODUCT USED FOR UNKNOWN INDICATION
     Dosage: 40 MG
     Route: 065
     Dates: start: 20200411
  14. NIFEDIPIN [Interacting]
     Active Substance: NIFEDIPINE
     Dosage: 20 MG/ML, ONCE/SINGLE
     Route: 065
     Dates: start: 20200314
  15. BISOPROLOL [Interacting]
     Active Substance: BISOPROLOL
     Dosage: 0.5 DF, BID (2.5 MG)
     Route: 065
     Dates: start: 20200413
  16. CANDESARTAN. [Suspect]
     Active Substance: CANDESARTAN
     Indication: PRODUCT USED FOR UNKNOWN INDICATION
     Dosage: 8 MG, QD (DAILY AT 5 PM)
     Route: 065
     Dates: start: 20200407
  17. CANDESARTAN. [Interacting]
     Active Substance: CANDESARTAN
     Dosage: 0.5 DF, QD (HALF DOSAGE OF 8MG, DAILY AT 9 AM)
     Route: 065
     Dates: start: 20200407

REACTIONS (2)
  - Drug interaction [Unknown]
  - Blood pressure systolic increased [Unknown]
